FAERS Safety Report 20558080 (Version 4)
Quarter: 2022Q4

REPORT INFORMATION
  Report Type: Report from Study
  Country: US (occurrence: US)
  Receive Date: 20220307
  Receipt Date: 20221227
  Transmission Date: 20230113
  Serious: Yes (Hospitalization)
  Sender: FDA-Public Use
  Company Number: US-BoehringerIngelheim-2021-BI-141958

PATIENT
  Age: 71 Year
  Sex: Male

DRUGS (4)
  1. OFEV [Suspect]
     Active Substance: NINTEDANIB
     Indication: Pulmonary fibrosis
     Route: 048
  2. OFEV [Suspect]
     Active Substance: NINTEDANIB
     Route: 048
     Dates: end: 202202
  3. OFEV [Suspect]
     Active Substance: NINTEDANIB
     Route: 048
  4. XARELTO [Concomitant]
     Active Substance: RIVAROXABAN
     Indication: Product used for unknown indication

REACTIONS (13)
  - Gastrointestinal haemorrhage [Unknown]
  - Gastrooesophageal reflux disease [Unknown]
  - Dizziness [Unknown]
  - Balance disorder [Unknown]
  - Hypotension [Unknown]
  - Gait disturbance [Unknown]
  - Visual impairment [Unknown]
  - Depression [Not Recovered/Not Resolved]
  - Diarrhoea [Not Recovered/Not Resolved]
  - Faeces discoloured [Unknown]
  - Haemoglobin decreased [Unknown]
  - Nausea [Not Recovered/Not Resolved]
  - Haemorrhoidal haemorrhage [Unknown]

NARRATIVE: CASE EVENT DATE: 20221001
